FAERS Safety Report 7068941-7 (Version None)
Quarter: 2010Q4

REPORT INFORMATION
  Report Type: 
  Country: None (occurrence: None)
  Receive Date: 20101028
  Receipt Date: 20101025
  Transmission Date: 20110411
  Serious: Yes (Death)
  Sender: FDA-Public Use
  Company Number: PHHY2010US71878

PATIENT

DRUGS (1)
  1. EXJADE [Suspect]
     Indication: MYELOID LEUKAEMIA
     Dosage: 1000 MG DAILY
     Route: 048
     Dates: start: 20100903

REACTIONS (1)
  - DEATH [None]
